FAERS Safety Report 4615551-4 (Version None)
Quarter: 2005Q2

REPORT INFORMATION
  Report Type: 
  Country: None (occurrence: None)
  Receive Date: 20050311
  Receipt Date: 20041221
  Transmission Date: 20051028
  Serious: No
  Sender: FDA-Public Use
  Company Number: 2004-BP-14259BP

PATIENT
  Age: 79 Year
  Sex: Male
  Weight: 71.2 kg

DRUGS (3)
  1. SPIRIVA [Suspect]
     Indication: CHRONIC OBSTRUCTIVE PULMONARY DISEASE
     Dosage: 18 MCG (18 MCG, OD)
     Dates: start: 20040903, end: 20040904
  2. HYTRIN [Concomitant]
  3. LISINOPRIL/HUDROCHLOROTHIAZIDE (PRINZIDE) [Concomitant]

REACTIONS (2)
  - CONFUSIONAL STATE [None]
  - DISORIENTATION [None]
